FAERS Safety Report 23616634 (Version 1)
Quarter: 2024Q1

REPORT INFORMATION
  Report Type: Spontaneous
  Country: NZ (occurrence: NZ)
  Receive Date: 20240311
  Receipt Date: 20240311
  Transmission Date: 20240409
  Serious: Yes (Hospitalization, Other)
  Sender: FDA-Public Use
  Company Number: NZ-009507513-2403NZL001968

PATIENT
  Age: 52 Year
  Sex: Male

DRUGS (1)
  1. PEMBROLIZUMAB [Suspect]
     Active Substance: PEMBROLIZUMAB
     Indication: Malignant melanoma
     Dosage: ADJUVANT, ONE DOSE

REACTIONS (6)
  - Retinitis [Recovering/Resolving]
  - Myocarditis [Recovering/Resolving]
  - Hepatitis [Recovering/Resolving]
  - Thyroiditis [Recovering/Resolving]
  - Pneumonitis [Recovering/Resolving]
  - Lung opacity [Recovering/Resolving]
